FAERS Safety Report 13394553 (Version 1)
Quarter: 2017Q2

REPORT INFORMATION
  Report Type: Report from Study
  Country: CA (occurrence: CA)
  Receive Date: 20170403
  Receipt Date: 20170403
  Transmission Date: 20170830
  Serious: Yes (Death, Other)
  Sender: FDA-Public Use
  Company Number: CA-ROCHE-1766635

PATIENT
  Age: 72 Year
  Sex: Male

DRUGS (15)
  1. SOLU-MEDROL [Concomitant]
     Active Substance: METHYLPREDNISOLONE SODIUM SUCCINATE
     Indication: PREMEDICATION
     Route: 042
     Dates: start: 20151028
  2. DIGOXINE [Concomitant]
     Active Substance: DIGOXIN
  3. PANTOLOC [Concomitant]
     Active Substance: PANTOPRAZOLE SODIUM
  4. TYLENOL [Concomitant]
     Active Substance: ACETAMINOPHEN
     Indication: PREMEDICATION
     Route: 048
     Dates: start: 20151028
  5. ATORVASTATINE [Concomitant]
     Active Substance: ATORVASTATIN
  6. BENADRYL [Concomitant]
     Active Substance: DIPHENHYDRAMINE HYDROCHLORIDE
     Indication: PREMEDICATION
     Route: 048
     Dates: start: 20151028
  7. PREDNISONE. [Concomitant]
     Active Substance: PREDNISONE
  8. BISOPROLOL [Concomitant]
     Active Substance: BISOPROLOL
  9. PRAMIPEXOLE. [Concomitant]
     Active Substance: PRAMIPEXOLE
  10. RIVAROXABAN [Concomitant]
     Active Substance: RIVAROXABAN
  11. RITUXAN [Suspect]
     Active Substance: RITUXIMAB
     Indication: RHEUMATOID ARTHRITIS
     Dosage: FREQUENCY: DAY1,15
     Route: 042
     Dates: start: 20151028, end: 20161208
  12. HYDROXYCHLOROQUINE [Concomitant]
     Active Substance: HYDROXYCHLOROQUINE
  13. CANDESARTAN. [Concomitant]
     Active Substance: CANDESARTAN
  14. PROPAFENONE. [Concomitant]
     Active Substance: PROPAFENONE
  15. CITALOPRAM [Concomitant]
     Active Substance: CITALOPRAM HYDROBROMIDE

REACTIONS (9)
  - Blood pressure diastolic increased [Unknown]
  - Oxygen saturation decreased [Unknown]
  - Fatigue [Not Recovered/Not Resolved]
  - Pulmonary fibrosis [Fatal]
  - Dyspnoea [Not Recovered/Not Resolved]
  - Pulmonary function test decreased [Recovered/Resolved]
  - Heart rate decreased [Unknown]
  - Lower respiratory tract infection [Not Recovered/Not Resolved]
  - Respiratory rate increased [Unknown]

NARRATIVE: CASE EVENT DATE: 2016
